FAERS Safety Report 9416656 (Version 1)
Quarter: 2013Q3

REPORT INFORMATION
  Report Type: Spontaneous
  Country: GR (occurrence: None)
  Receive Date: 20130719
  Receipt Date: 20130719
  Transmission Date: 20140515
  Serious: Yes (Life-Threatening)
  Sender: FDA-Public Use
  Company Number: 2013GR0296

PATIENT
  Age: 36 Year
  Sex: Female

DRUGS (1)
  1. ANAKINRA [Suspect]
     Indication: STILL^S DISEASE ADULT ONSET

REACTIONS (2)
  - Histiocytosis haematophagic [None]
  - Injection site erythema [None]
